FAERS Safety Report 22253705 (Version 1)
Quarter: 2023Q2

REPORT INFORMATION
  Report Type: Other
  Country: US (occurrence: None)
  Receive Date: 20230426
  Receipt Date: 20230426
  Transmission Date: 20230722
  Serious: Yes (Other)
  Sender: FDA-Public Use
  Company Number: US-ROCHE-3163583

PATIENT
  Age: 15 Year
  Sex: Male

DRUGS (1)
  1. PULMOZYME [Suspect]
     Active Substance: DORNASE ALFA
     Indication: Cystic fibrosis
     Dosage: SOLUTION, NON-ORAL, NEBULIZE THE CONTENTS OF 1 VIALS EVERY DAY
     Route: 065

REACTIONS (3)
  - COVID-19 [Unknown]
  - Off label use [Unknown]
  - Pneumonia [Unknown]
